FAERS Safety Report 10638281 (Version 1)
Quarter: 2014Q4

REPORT INFORMATION
  Report Type: Spontaneous
  Country: US (occurrence: None)
  Receive Date: 20141204
  Receipt Date: 20141204
  Transmission Date: 20150529
  Serious: Yes (Hospitalization)
  Sender: FDA-Public Use
  Company Number: BU2014-006

PATIENT
  Age: 42 Year
  Sex: Male

DRUGS (1)
  1. BUPHENYL [Suspect]
     Active Substance: SODIUM PHENYLBUTYRATE
     Indication: UREA CYCLE ENZYME DEFICIENCY

REACTIONS (3)
  - Dehydration [None]
  - Vomiting [None]
  - Influenza [None]

NARRATIVE: CASE EVENT DATE: 20141117
